FAERS Safety Report 11402454 (Version 1)
Quarter: 2015Q3

REPORT INFORMATION
  Report Type: Spontaneous
  Country: US (occurrence: US)
  Receive Date: 20150821
  Receipt Date: 20150821
  Transmission Date: 20151125
  Serious: No
  Sender: FDA-Public Use
  Company Number: US-ROCHE-1313686

PATIENT
  Sex: Male

DRUGS (2)
  1. PEGASYS [Suspect]
     Active Substance: PEGINTERFERON ALFA-2A
     Indication: HEPATITIS C
     Route: 065
     Dates: start: 20131030
  2. COPEGUS [Suspect]
     Active Substance: RIBAVIRIN
     Indication: HEPATITIS C
     Dosage: 200 MG TWICE DAILY AND 800 MG DAILY
     Route: 065
     Dates: start: 20131030

REACTIONS (5)
  - Urticaria [Unknown]
  - Generalised erythema [Unknown]
  - Pain of skin [Unknown]
  - Pruritus [Unknown]
  - Rash [Unknown]
